FAERS Safety Report 12336426 (Version 4)
Quarter: 2017Q2

REPORT INFORMATION
  Report Type: Spontaneous
  Country: DE (occurrence: DE)
  Receive Date: 20160505
  Receipt Date: 20170428
  Transmission Date: 20170830
  Serious: No
  Sender: FDA-Public Use
  Company Number: DE-AUROBINDO-AUR-APL-2016-05482

PATIENT
  Age: 80 Year
  Sex: Male
  Weight: 86 kg

DRUGS (10)
  1. OXYCODONHYDROCHLORID-ACTAVIS 5 MG  CAPSULE, HARD [Suspect]
     Active Substance: OXYCODONE
     Indication: ANKYLOSING SPONDYLITIS
     Dosage: UNK
     Route: 065
     Dates: start: 20160418
  2. NAPROXEN. [Concomitant]
     Active Substance: NAPROXEN
     Indication: ANKYLOSING SPONDYLITIS
     Dosage: 1-0-1
     Route: 048
     Dates: start: 20160406
  3. FINASTERID [Concomitant]
     Active Substance: FINASTERIDE
     Indication: BENIGN PROSTATIC HYPERPLASIA
     Dosage: 1 UNK, UNK
     Route: 048
     Dates: start: 20160308
  4. SPASMEX                            /00376202/ [Concomitant]
     Active Substance: TROSPIUM CHLORIDE
     Indication: BLADDER IRRITATION
     Dosage: 1-0-0-2
     Route: 048
     Dates: start: 20160406
  5. OXYCODON [Concomitant]
     Active Substance: OXYCODONE
     Indication: FEMORAL NECK FRACTURE
  6. ATORVASTATIN [Concomitant]
     Active Substance: ATORVASTATIN
     Indication: CORONARY ARTERY DISEASE
     Dosage: 1 UNK, UNK
     Route: 048
     Dates: start: 20160308
  7. OMEPRAZOL                          /00661201/ [Concomitant]
     Active Substance: OMEPRAZOLE
     Indication: GASTROOESOPHAGEAL REFLUX DISEASE
     Dosage: 1 UNK, UNK
     Route: 048
     Dates: start: 20160317
  8. OXYCODON [Concomitant]
     Active Substance: OXYCODONE
     Indication: ANKYLOSING SPONDYLITIS
     Dosage: 1-0-0
     Route: 048
     Dates: start: 20160418
  9. OXYCODON [Concomitant]
     Active Substance: OXYCODONE
     Indication: MUSCULOSKELETAL DISCOMFORT
  10. ASPIRIN. [Concomitant]
     Active Substance: ASPIRIN
     Indication: CORONARY ARTERY DISEASE
     Dosage: 1 UNK, UNK
     Route: 048
     Dates: start: 20140625

REACTIONS (11)
  - Syncope [Recovered/Resolved]
  - Dizziness [Recovered/Resolved]
  - Loss of personal independence in daily activities [Recovered/Resolved]
  - Vertigo [Recovered/Resolved]
  - Cough [Recovered/Resolved]
  - Chills [Recovered/Resolved]
  - Feeling cold [Recovered/Resolved]
  - Feeling abnormal [Recovered/Resolved]
  - Cold sweat [Recovered/Resolved]
  - Nausea [Recovered/Resolved]
  - Retching [Recovered/Resolved]

NARRATIVE: CASE EVENT DATE: 20160502
